FAERS Safety Report 14613579 (Version 2)
Quarter: 2018Q1

REPORT INFORMATION
  Report Type: Spontaneous
  Country: US (occurrence: US)
  Receive Date: 20180308
  Receipt Date: 20180321
  Transmission Date: 20180509
  Serious: Yes (Death, Hospitalization)
  Sender: FDA-Public Use
  Company Number: US-NOVOPROD-588793

PATIENT
  Age: 25 Year
  Sex: Male
  Weight: 72.1 kg

DRUGS (1)
  1. NOVOSEVEN RT [Suspect]
     Active Substance: COAGULATION FACTOR VIIA RECOMBINANT HUMAN
     Indication: HAEMOPHILIA B WITH ANTI FACTOR IX
     Dosage: 8 MG, 2-3 HOURS (90 MCG/PER KILO)
     Route: 041

REACTIONS (4)
  - Haemothorax [Fatal]
  - Haemorrhage [Recovering/Resolving]
  - Myocardial infarction [Fatal]
  - Ear haemorrhage [Recovering/Resolving]

NARRATIVE: CASE EVENT DATE: 201801
